FAERS Safety Report 7319925 (Version 3)
Quarter: 2012Q4

REPORT INFORMATION
  Report Type: Report from Study
  Country: BE (occurrence: BE)
  Receive Date: 20100315
  Receipt Date: 20121121
  Transmission Date: 20130627
  Serious: Yes (Other)
  Sender: FDA-Public Use
  Company Number: BE-ROCHE-688226

PATIENT
  Age: 62 Year
  Sex: Male
  Weight: 70 kg

DRUGS (3)
  1. BEVACIZUMAB [Suspect]
     Indication: COLORECTAL CANCER METASTATIC
     Dosage: LAST DOSE PRIOR TO SAE: 07 DEC 2009
     Route: 042
     Dates: start: 20091026, end: 20091224
  2. CAPECITABINE [Suspect]
     Indication: COLORECTAL CANCER METASTATIC
     Dosage: TDD: 2000/MG
     Route: 065
     Dates: start: 20091026, end: 20091221
  3. OXALIPLATIN [Concomitant]
     Dosage: TDD: 186/MG
     Route: 065
     Dates: start: 20091026, end: 20091207

REACTIONS (1)
  - Toxicity to various agents [Recovered/Resolved]
